FAERS Safety Report 15652292 (Version 1)
Quarter: 2018Q4

REPORT INFORMATION
  Report Type: Spontaneous
  Country: US (occurrence: US)
  Receive Date: 20181123
  Receipt Date: 20181123
  Transmission Date: 20190205
  Serious: No
  Sender: FDA-Public Use
  Company Number: US-FOUNDATIONCONSUMERHC-2018-US-013113

PATIENT
  Age: 29 Year
  Sex: Female
  Weight: 85.28 kg

DRUGS (3)
  1. UNSPECIFIED IUD [Concomitant]
     Dosage: REMOVED 18-JUL-2018
     Dates: end: 20180718
  2. IBUPROFEN. [Concomitant]
     Active Substance: IBUPROFEN
     Dosage: PRN
  3. PLAN B ONE-STEP [Suspect]
     Active Substance: LEVONORGESTREL
     Indication: POST COITAL CONTRACEPTION
     Dosage: 1.5 MG PO
     Route: 048
     Dates: start: 20180720, end: 20180720

REACTIONS (7)
  - Pollakiuria [Not Recovered/Not Resolved]
  - Nausea [Not Recovered/Not Resolved]
  - Dysmenorrhoea [Not Recovered/Not Resolved]
  - Vomiting [Recovered/Resolved]
  - Dizziness [Not Recovered/Not Resolved]
  - Headache [Not Recovered/Not Resolved]
  - Fatigue [Not Recovered/Not Resolved]

NARRATIVE: CASE EVENT DATE: 20180723
